FAERS Safety Report 10014641 (Version 6)
Quarter: 2019Q3

REPORT INFORMATION
  Report Type: Spontaneous
  Country: DE (occurrence: DE)
  Receive Date: 20140317
  Receipt Date: 20190913
  Transmission Date: 20191004
  Serious: Yes (Death, Hospitalization, Other)
  Sender: FDA-Public Use
  Company Number: DE-BRISTOL-MYERS SQUIBB COMPANY-20467809

PATIENT
  Age: 64 Year
  Sex: Male
  Weight: 66 kg

DRUGS (4)
  1. ERBITUX [Suspect]
     Active Substance: CETUXIMAB
     Indication: SQUAMOUS CELL CARCINOMA OF HEAD AND NECK
     Dosage: 400 MICROGRAM/SQ. METER
     Route: 042
     Dates: start: 20140114, end: 20140226
  2. 5-FLUOROURACIL [FLUOROURACIL] [Suspect]
     Active Substance: FLUOROURACIL
     Indication: SQUAMOUS CELL CARCINOMA OF HEAD AND NECK
     Dosage: 4000 MILLIGRAM/SQ. METER, Q3WK
     Route: 042
     Dates: start: 20140114, end: 20140219
  3. KEVATRIL [Concomitant]
     Active Substance: GRANISETRON HYDROCHLORIDE
     Indication: PREMEDICATION
     Dosage: UNK UNK, QD
     Route: 065
     Dates: start: 20140114, end: 20140114
  4. CISPLATIN. [Suspect]
     Active Substance: CISPLATIN
     Indication: SQUAMOUS CELL CARCINOMA OF HEAD AND NECK
     Dosage: 100 MILLIGRAM/SQ. METER, Q3WK
     Route: 042
     Dates: start: 20140114, end: 20140219

REACTIONS (10)
  - Respiratory failure [Fatal]
  - Suture related complication [Unknown]
  - Hypoalbuminaemia [Recovered/Resolved]
  - Malignant neoplasm progression [Fatal]
  - Peritonitis [Fatal]
  - Septic shock [Unknown]
  - Large intestine perforation [Fatal]
  - Hypomagnesaemia [Recovered/Resolved]
  - Megacolon [Unknown]
  - Multiple organ dysfunction syndrome [Unknown]

NARRATIVE: CASE EVENT DATE: 20140204
